FAERS Safety Report 10684611 (Version 1)
Quarter: 2014Q4

REPORT INFORMATION
  Report Type: Spontaneous
  Country: US (occurrence: None)
  Receive Date: 20141230
  Receipt Date: 20141230
  Transmission Date: 20150529
  Serious: Yes (Disabling)
  Sender: FDA-Public Use
  Company Number: None

PATIENT
  Age: 48 Year
  Sex: Male
  Weight: 108.86 kg

DRUGS (2)
  1. PROMETHAZINE DM [Suspect]
     Active Substance: DEXTROMETHORPHAN HYDROBROMIDE\PROMETHAZINE HYDROCHLORIDE
     Indication: COUGH
     Dosage: 2 TEASPOONS  FOUR TIMES DAILY  TAKEN UNDER THE TONGUE
     Route: 060
     Dates: start: 20141221, end: 20141221
  2. PROMETHAZINE DM [Suspect]
     Active Substance: DEXTROMETHORPHAN HYDROBROMIDE\PROMETHAZINE HYDROCHLORIDE
     Indication: SINUS DISORDER
     Dosage: 2 TEASPOONS  FOUR TIMES DAILY  TAKEN UNDER THE TONGUE
     Route: 060
     Dates: start: 20141221, end: 20141221

REACTIONS (7)
  - Oropharyngeal pain [None]
  - Dysphagia [None]
  - Regurgitation [None]
  - Hiccups [None]
  - Eructation [None]
  - Glossodynia [None]
  - Throat irritation [None]

NARRATIVE: CASE EVENT DATE: 20141222
